FAERS Safety Report 5105940-6 (Version None)
Quarter: 2006Q3

REPORT INFORMATION
  Report Type: 
  Country: None (occurrence: None)
  Receive Date: 20060912
  Receipt Date: 20060828
  Transmission Date: 20061208
  Serious: Yes (Death)
  Sender: FDA-Public Use
  Company Number: 2006S1007476

PATIENT
  Age: 81 Year
  Sex: Female
  Weight: 50.8029 kg

DRUGS (11)
  1. CLOZAPINE [Suspect]
     Indication: SCHIZOPHRENIA, PARANOID TYPE
     Dosage: SEE IMAGE, PO
     Route: 048
     Dates: start: 20020221, end: 20060101
  2. DILTIAZEM HCL [Concomitant]
  3. DIGOXIN [Concomitant]
  4. FUROSEMIDE [Concomitant]
  5. POTASSIUM CHLORIDE [Concomitant]
  6. PAROXETINE HCL [Concomitant]
  7. ASPIRIN [Concomitant]
  8. PERI-COLACE [Concomitant]
  9. CALCIUM GLUCONATE [Concomitant]
  10. ARIPIPRAZOLE [Concomitant]
  11. LORAZEPAM [Concomitant]

REACTIONS (2)
  - REFUSAL OF TREATMENT BY PATIENT [None]
  - TREATMENT NONCOMPLIANCE [None]
